FAERS Safety Report 7536424-3 (Version None)
Quarter: 2011Q2

REPORT INFORMATION
  Report Type: 
  Country: None (occurrence: None)
  Receive Date: 20110609
  Receipt Date: 20110601
  Transmission Date: 20111010
  Serious: Yes (Other)
  Sender: FDA-Public Use
  Company Number: RU-US-EMD SERONO, INC.-7042049

PATIENT
  Sex: Female

DRUGS (3)
  1. REGULON [Concomitant]
     Dates: start: 20101001, end: 20101001
  2. MEDICATIONS PROVOKING MENSES [Concomitant]
     Dates: start: 20101101
  3. REBIF [Suspect]
     Indication: MULTIPLE SCLEROSIS
     Dates: start: 20090801

REACTIONS (4)
  - ABORTION INDUCED [None]
  - INFERTILITY FEMALE [None]
  - DRUG EXPOSURE DURING PREGNANCY [None]
  - PELVIC PAIN [None]
